FAERS Safety Report 5876339-X (Version None)
Quarter: 2008Q3

REPORT INFORMATION
  Report Type: 
  Country: None (occurrence: None)
  Receive Date: 20080910
  Receipt Date: 20080908
  Transmission Date: 20090109
  Serious: Yes (Life-Threatening, Hospitalization)
  Sender: FDA-Public Use
  Company Number: US-WATSON-2008-04435

PATIENT
  Sex: Female

DRUGS (1)
  1. MINOCYCLINE HYDROCHLORIDE (WATSON LABORATORIES) [Suspect]
     Indication: ACNE
     Dosage: UNK
     Route: 048
     Dates: end: 20060610

REACTIONS (13)
  - ASTHENIA [None]
  - DERMATITIS EXFOLIATIVE [None]
  - DYSPNOEA [None]
  - EYE INJURY [None]
  - HYPERTENSION [None]
  - NEPHRITIS INTERSTITIAL [None]
  - PNEUMONITIS [None]
  - PYREXIA [None]
  - RASH [None]
  - RENAL FAILURE [None]
  - SKIN INJURY [None]
  - TYPE 1 DIABETES MELLITUS [None]
  - VISUAL IMPAIRMENT [None]
